FAERS Safety Report 8140939-7 (Version None)
Quarter: 2012Q1

REPORT INFORMATION
  Report Type: 
  Country: None (occurrence: None)
  Receive Date: 20120216
  Receipt Date: 20120209
  Transmission Date: 20120608
  Serious: Yes (Other)
  Sender: FDA-Public Use
  Company Number: FR-PFIZER INC-2012036858

PATIENT
  Age: 26 Year
  Sex: Female

DRUGS (2)
  1. VERAPAMIL [Concomitant]
     Dosage: 240 MG, 2X/DAY
  2. SUMATRIPTAN SUCCINATE [Suspect]
     Indication: CLUSTER HEADACHE
     Dosage: 1-2 INJECTIONS PER MONTH
     Route: 058
     Dates: end: 20100201

REACTIONS (1)
  - VISUAL FIELD DEFECT [None]
